FAERS Safety Report 16362182 (Version 2)
Quarter: 2019Q2

REPORT INFORMATION
  Report Type: Spontaneous
  Country: JP (occurrence: JP)
  Receive Date: 20190528
  Receipt Date: 20190531
  Transmission Date: 20190711
  Serious: No
  Sender: FDA-Public Use
  Company Number: JP-AMGEN-JPNSP2019081749

PATIENT
  Age: 88 Year
  Sex: Female

DRUGS (4)
  1. SALSOROITIN [CHONDROITIN SULFATE SODIUM NOS\SODIUM BROMIDE\SODIUM SALICYLATE] [Suspect]
     Active Substance: CHONDROITIN SULFATE SODIUM NOS\SODIUM BROMIDE\SODIUM SALICYLATE
     Indication: PRODUCT USED FOR UNKNOWN INDICATION
     Dosage: UNK
     Route: 065
     Dates: start: 20190511, end: 20190517
  2. LOXOPROFEN [Suspect]
     Active Substance: LOXOPROFEN
     Indication: PRODUCT USED FOR UNKNOWN INDICATION
     Dosage: UNK
     Route: 065
     Dates: start: 20190511, end: 20190518
  3. EVENITY [Suspect]
     Active Substance: ROMOSOZUMAB-AQQG
     Indication: OSTEOPOROSIS
     Dosage: 210 MILLIGRAM, QMO
     Route: 058
     Dates: start: 20190515, end: 201905
  4. REBAMIPIDE [Concomitant]
     Active Substance: REBAMIPIDE
     Dosage: UNK
     Dates: start: 20190511, end: 20190518

REACTIONS (3)
  - Rash [Recovered/Resolved]
  - Skin oedema [Recovering/Resolving]
  - Urticaria [Recovered/Resolved]

NARRATIVE: CASE EVENT DATE: 20190516
